FAERS Safety Report 9629724 (Version 1)
Quarter: 2013Q4

REPORT INFORMATION
  Report Type: Spontaneous
  Country: IN (occurrence: IN)
  Receive Date: 20131017
  Receipt Date: 20131017
  Transmission Date: 20140711
  Serious: Yes (Hospitalization, Other)
  Sender: FDA-Public Use
  Company Number: IN-ROXANE LABORATORIES, INC.-2013-RO-01678RO

PATIENT
  Age: 30 Year
  Sex: Male

DRUGS (4)
  1. LITHIUM CARBONATE [Suspect]
     Indication: AGGRESSION
  2. OXCARBAZEPINE [Suspect]
     Indication: MANIA
     Dosage: 900 MG
  3. DIVALPROEX SODIUM [Suspect]
     Indication: MANIA
     Dosage: 1500 MG
  4. OLANZAPINE [Suspect]
     Indication: MANIA
     Dosage: 20 MG

REACTIONS (2)
  - Delirium [Recovered/Resolved]
  - Aggression [Recovered/Resolved]
